FAERS Safety Report 5796232-0 (Version None)
Quarter: 2008Q3

REPORT INFORMATION
  Report Type: 
  Country: None (occurrence: None)
  Receive Date: 20080701
  Receipt Date: 20080623
  Transmission Date: 20090109
  Serious: Yes (Death, Life-Threatening, Other)
  Sender: FDA-Public Use
  Company Number: GB-JNJFOC-20080603076

PATIENT
  Sex: Female
  Weight: 41 kg

DRUGS (7)
  1. REMICADE [Suspect]
     Indication: RHEUMATOID ARTHRITIS
     Route: 042
  2. METHOTREXATE [Concomitant]
  3. CALCICHEW [Concomitant]
  4. CELEBREX [Concomitant]
  5. CO-PROXAMOL [Concomitant]
  6. LEVOTHYROXINE SODIUM [Concomitant]
  7. ZANTAC [Concomitant]

REACTIONS (2)
  - BRONCHOPNEUMONIA [None]
  - OESOPHAGEAL RUPTURE [None]
